FAERS Safety Report 9957532 (Version 3)
Quarter: 2014Q2

REPORT INFORMATION
  Report Type: Report from Study
  Country: GB (occurrence: GB)
  Receive Date: 20140304
  Receipt Date: 20140422
  Transmission Date: 20141212
  Serious: Yes (Hospitalization, Other)
  Sender: FDA-Public Use
  Company Number: GB-ROCHE-1359188

PATIENT
  Age: 88 Year
  Sex: Female

DRUGS (6)
  1. RANIBIZUMAB [Suspect]
     Indication: AGE-RELATED MACULAR DEGENERATION
     Route: 050
     Dates: start: 20090811
  2. RANIBIZUMAB [Suspect]
     Route: 050
     Dates: start: 20131125
  3. METFORMIN [Concomitant]
     Indication: TYPE 2 DIABETES MELLITUS
     Route: 065
     Dates: start: 20050101
  4. CO-DYDRAMOL [Concomitant]
     Indication: OSTEOARTHRITIS
     Route: 065
     Dates: start: 19990101
  5. QUININE SULFATE [Concomitant]
     Indication: MUSCLE SPASMS
     Route: 065
     Dates: start: 20000101
  6. OMEPRAZOLE [Concomitant]
     Indication: EPIGASTRIC DISCOMFORT
     Route: 065
     Dates: start: 20050101

REACTIONS (6)
  - Fall [Unknown]
  - Humerus fracture [Recovered/Resolved]
  - VIIth nerve paralysis [Recovering/Resolving]
  - Dizziness [Recovered/Resolved]
  - Dysarthria [Recovered/Resolved]
  - Vision blurred [Recovered/Resolved]
